FAERS Safety Report 9843904 (Version 5)
Quarter: 2016Q3

REPORT INFORMATION
  Report Type: Report from Study
  Country: CA (occurrence: CA)
  Receive Date: 20140126
  Receipt Date: 20160906
  Transmission Date: 20161109
  Serious: Yes (Other)
  Sender: FDA-Public Use
  Company Number: PHHY2013CA060807

PATIENT
  Age: 60 Year
  Sex: Male

DRUGS (3)
  1. SANDOSTATIN LAR DEPOT [Suspect]
     Active Substance: OCTREOTIDE ACETATE
     Indication: NEUROENDOCRINE TUMOUR
     Dosage: 20 MG, ONE TIME DOSE
     Route: 030
     Dates: start: 20130607
  2. SANDOSTATIN [Suspect]
     Active Substance: OCTREOTIDE ACETATE
     Indication: NEUROENDOCRINE TUMOUR
     Dosage: 200 UG, BID
     Route: 058
     Dates: start: 20130503, end: 20130603
  3. SANDOSTATIN LAR DEPOT [Suspect]
     Active Substance: OCTREOTIDE ACETATE
     Dosage: 30 MG, QMO (ONCE A MONTH)
     Route: 030

REACTIONS (10)
  - Rib fracture [Unknown]
  - Head injury [Unknown]
  - Heart rate increased [Unknown]
  - Flushing [Unknown]
  - Blood pressure increased [Unknown]
  - Laceration [Unknown]
  - Stress [Unknown]
  - Eating disorder [Unknown]
  - Fall [Unknown]
  - Frequent bowel movements [Unknown]

NARRATIVE: CASE EVENT DATE: 201505
